FAERS Safety Report 6526679-6 (Version None)
Quarter: 2009Q4

REPORT INFORMATION
  Report Type: 
  Country: None (occurrence: None)
  Receive Date: 20091230
  Receipt Date: 20091216
  Transmission Date: 20100525
  Serious: Yes (Other)
  Sender: FDA-Public Use
  Company Number: MC200900436

PATIENT
  Age: 63 Year
  Sex: Female

DRUGS (2)
  1. ANGIOMAX [Suspect]
     Indication: PERCUTANEOUS CORONARY INTERVENTION
     Dosage: 0.75 MG/KG BOLUS
     Dates: start: 20091203, end: 20091203
  2. ANGIOMAX [Suspect]
     Dosage: 1.75 MG/KG/HR
     Dates: start: 20091203, end: 20091203

REACTIONS (4)
  - CHEST PAIN [None]
  - DEVICE OCCLUSION [None]
  - POST PROCEDURAL COMPLICATION [None]
  - THROMBOSIS IN DEVICE [None]
